FAERS Safety Report 4601410-X (Version None)
Quarter: 2005Q2

REPORT INFORMATION
  Report Type: 
  Country: None (occurrence: None)
  Receive Date: 20050203
  Receipt Date: 20040414
  Transmission Date: 20051028
  Serious: Yes (Hospitalization, Other)
  Sender: FDA-Public Use
  Company Number: PHEH2004US02353

PATIENT
  Age: 18 Year
  Sex: Male

DRUGS (2)
  1. RITALIN [Suspect]
     Indication: PSYCHOMOTOR HYPERACTIVITY
     Dosage: 25 MG, BID, ORAL
     Route: 048
     Dates: start: 19910101, end: 20020101
  2. PAXIL [Concomitant]

REACTIONS (9)
  - DECREASED APPETITE [None]
  - DEPRESSION [None]
  - DISSOCIATIVE IDENTITY DISORDER [None]
  - DISTURBANCE IN ATTENTION [None]
  - LEARNING DISORDER [None]
  - MENTAL IMPAIRMENT [None]
  - NERVOUSNESS [None]
  - SLEEP DISORDER [None]
  - WEIGHT DECREASED [None]
